FAERS Safety Report 20997576 (Version 2)
Quarter: 2022Q3

REPORT INFORMATION
  Report Type: Spontaneous
  Country: ES (occurrence: ES)
  Receive Date: 20220623
  Receipt Date: 20220812
  Transmission Date: 20221026
  Serious: Yes (Hospitalization, Other)
  Sender: FDA-Public Use
  Company Number: ES-JNJFOC-20220638150

PATIENT
  Sex: Male

DRUGS (5)
  1. PALIPERIDONE PALMITATE [Suspect]
     Active Substance: PALIPERIDONE PALMITATE
     Indication: Schizophrenia
     Route: 030
     Dates: start: 201702
  2. PALIPERIDONE PALMITATE [Suspect]
     Active Substance: PALIPERIDONE PALMITATE
  3. PALIPERIDONE PALMITATE [Suspect]
     Active Substance: PALIPERIDONE PALMITATE
  4. ARIPIPRAZOLE [Concomitant]
     Active Substance: ARIPIPRAZOLE
     Dates: start: 2013, end: 201801
  5. CLORAZEPATE DIPOTASSIUM [Concomitant]
     Active Substance: CLORAZEPATE DIPOTASSIUM

REACTIONS (13)
  - Felty^s syndrome [Recovering/Resolving]
  - Pancytopenia [Unknown]
  - Gastroenteritis [Unknown]
  - Congenital aortic anomaly [Unknown]
  - Oesophageal candidiasis [Unknown]
  - Pleural thickening [Unknown]
  - Emphysema [Unknown]
  - Weight decreased [Unknown]
  - Hepatic steatosis [Unknown]
  - Inguinal hernia [Unknown]
  - Vitamin D deficiency [Unknown]
  - Iron deficiency anaemia [Unknown]
  - Gynaecomastia [Unknown]

NARRATIVE: CASE EVENT DATE: 20190101
